FAERS Safety Report 9592490 (Version 1)
Quarter: 2013Q4

REPORT INFORMATION
  Report Type: Spontaneous
  Country: US (occurrence: None)
  Receive Date: 20131003
  Receipt Date: 20131003
  Transmission Date: 20140711
  Serious: No
  Sender: FDA-Public Use
  Company Number: None

PATIENT
  Age: 56 Year
  Sex: Female
  Weight: 60.78 kg

DRUGS (4)
  1. VIVITROL [Suspect]
     Indication: ALCOHOL ABUSE
     Route: 030
     Dates: start: 20130424, end: 20130925
  2. LAMICTAL [Concomitant]
  3. WELLBUTRIN SR [Concomitant]
  4. AMBIEN [Concomitant]

REACTIONS (6)
  - Injection site pain [None]
  - Injection site swelling [None]
  - Injection site mass [None]
  - Injury [None]
  - Haematoma [None]
  - Medical device complication [None]
